FAERS Safety Report 8237985-1 (Version None)
Quarter: 2012Q1

REPORT INFORMATION
  Report Type: 
  Country: None (occurrence: None)
  Receive Date: 20120327
  Receipt Date: 20120321
  Transmission Date: 20120608
  Serious: Yes (Other)
  Sender: FDA-Public Use
  Company Number: ES-MERCK-0812ESP00051

PATIENT
  Age: 58 Year
  Sex: Male

DRUGS (3)
  1. CEFEPIME [Concomitant]
     Route: 065
  2. CANCIDAS [Suspect]
     Indication: FEBRILE NEUTROPENIA
     Route: 042
     Dates: start: 20081020, end: 20081027
  3. VANCOMYCIN [Concomitant]
     Route: 065

REACTIONS (2)
  - HEPATITIS [None]
  - RASH [None]
